FAERS Safety Report 8932565 (Version 1)
Quarter: 2012Q4

REPORT INFORMATION
  Report Type: Spontaneous
  Country: US (occurrence: None)
  Receive Date: 20121119
  Receipt Date: 20121119
  Transmission Date: 20130627
  Serious: Yes (Hospitalization)
  Sender: FDA-Public Use
  Company Number: TPA2012A08899

PATIENT
  Sex: Male

DRUGS (1)
  1. DEXILANT [Suspect]

REACTIONS (2)
  - Surgery [None]
  - Hospitalisation [None]
